FAERS Safety Report 6088725-6 (Version None)
Quarter: 2009Q1

REPORT INFORMATION
  Report Type: 
  Country: None (occurrence: None)
  Receive Date: 20090219
  Receipt Date: 20090210
  Transmission Date: 20090719
  Serious: Yes (Death, Hospitalization)
  Sender: FDA-Public Use
  Company Number: GXKR2009JP01814

PATIENT
  Age: 72 Year
  Sex: Female

DRUGS (3)
  1. THIAMAZOLE [Suspect]
     Indication: BASEDOW'S DISEASE
     Dosage: , UNKNOWN
  2. METHYLPREDNISOLONE 4MG TAB [Suspect]
     Indication: ANTI-NEUTROPHIL CYTOPLASMIC ANTIBODY POSITIVE VASCULITIS
     Dosage: 0.5 G/DAY, UNKNOWN
  3. PREDNISOLONE [Suspect]
     Indication: ANTI-NEUTROPHIL CYTOPLASMIC ANTIBODY POSITIVE VASCULITIS
     Dosage: 20 MG/DAY, UNKNOWN

REACTIONS (16)
  - ANAEMIA [None]
  - ANOREXIA [None]
  - ANTI-NEUTROPHIL CYTOPLASMIC ANTIBODY POSITIVE VASCULITIS [None]
  - ASCITES [None]
  - AZOTAEMIA [None]
  - BACK PAIN [None]
  - BENIGN PANCREATIC NEOPLASM [None]
  - GLOMERULONEPHRITIS MEMBRANOUS [None]
  - HAEMODIALYSIS [None]
  - MULTI-ORGAN FAILURE [None]
  - NAUSEA [None]
  - NEPHROSCLEROSIS [None]
  - PANCREATIC NECROSIS [None]
  - PANCREATITIS ACUTE [None]
  - PLATELET COUNT DECREASED [None]
  - RENAL FAILURE CHRONIC [None]
